FAERS Safety Report 10917803 (Version 2)
Quarter: 2015Q2

REPORT INFORMATION
  Report Type: Spontaneous
  Country: US (occurrence: US)
  Receive Date: 20150316
  Receipt Date: 20150619
  Transmission Date: 20150821
  Serious: Yes (Death, Other)
  Sender: FDA-Public Use
  Company Number: US-GLAXOSMITHKLINE-US2015GSK032960

PATIENT
  Age: 73 Year
  Sex: Male
  Weight: 95.42 kg

DRUGS (1)
  1. VOTRIENT [Suspect]
     Active Substance: PAZOPANIB HYDROCHLORIDE
     Indication: RENAL CANCER
     Dosage: 800 MG, QD
     Route: 048
     Dates: start: 20150122, end: 20150224

REACTIONS (5)
  - Fall [Unknown]
  - Limb operation [Unknown]
  - Renal failure [Fatal]
  - Lower limb fracture [Unknown]
  - Pathological fracture [Unknown]

NARRATIVE: CASE EVENT DATE: 20150224
